FAERS Safety Report 4571385-0 (Version None)
Quarter: 2005Q1

REPORT INFORMATION
  Report Type: 
  Country: None (occurrence: None)
  Receive Date: 20050205
  Receipt Date: 20041223
  Transmission Date: 20050727
  Serious: Yes (Death, Hospitalization, Disabling, Other)
  Sender: FDA-Public Use
  Company Number: US-ABBOTT-04P-163-0284536-00

PATIENT
  Sex: Female
  Weight: 68.1 kg

DRUGS (17)
  1. HUMIRA [Suspect]
     Indication: RHEUMATOID ARTHRITIS
     Route: 058
     Dates: start: 20040801, end: 20041101
  2. HUMIRA [Suspect]
     Route: 058
     Dates: start: 20031001, end: 20040801
  3. PREDNISONE [Suspect]
     Indication: DRUG USE FOR UNKNOWN INDICATION
     Route: 048
     Dates: start: 19880101, end: 19930101
  4. PREDNISONE [Suspect]
     Route: 048
     Dates: start: 20031001, end: 20041101
  5. PREDNISONE [Suspect]
     Dates: start: 20030801, end: 20041201
  6. EPOGEN [Concomitant]
     Indication: DRUG USE FOR UNKNOWN INDICATION
     Route: 030
  7. FOLIC ACID [Concomitant]
     Indication: DRUG USE FOR UNKNOWN INDICATION
     Route: 048
  8. FUROSEMIDE [Concomitant]
     Indication: DRUG USE FOR UNKNOWN INDICATION
     Route: 048
  9. DOXERCALCIFEROL [Concomitant]
     Indication: DRUG USE FOR UNKNOWN INDICATION
     Route: 048
  10. M.V.I. [Concomitant]
     Indication: DRUG USE FOR UNKNOWN INDICATION
  11. IRBESARTAN [Concomitant]
     Indication: DRUG USE FOR UNKNOWN INDICATION
     Route: 048
     Dates: start: 20041202
  12. ALLOPURINOL [Concomitant]
     Indication: DRUG USE FOR UNKNOWN INDICATION
  13. LOVASTATIN [Concomitant]
     Indication: DRUG USE FOR UNKNOWN INDICATION
     Route: 048
  14. ALPRAZOLAM [Concomitant]
     Indication: DRUG USE FOR UNKNOWN INDICATION
  15. CLONIDINE [Concomitant]
     Indication: DRUG USE FOR UNKNOWN INDICATION
  16. TORSEMIDE [Concomitant]
     Indication: DRUG USE FOR UNKNOWN INDICATION
     Dates: start: 20041202
  17. VERAPAMIL [Concomitant]
     Indication: DRUG USE FOR UNKNOWN INDICATION
     Dates: end: 20041202

REACTIONS (50)
  - ASTHENIA [None]
  - ATRIAL FIBRILLATION [None]
  - BACTERIAL SEPSIS [None]
  - BLISTER [None]
  - CARDIAC FAILURE CONGESTIVE [None]
  - CARDIOGENIC SHOCK [None]
  - CELLULITIS [None]
  - CEREBRAL INFARCTION [None]
  - CHILLS [None]
  - CONDITION AGGRAVATED [None]
  - CONSTIPATION [None]
  - DECREASED APPETITE [None]
  - DERMATITIS BULLOUS [None]
  - DIARRHOEA [None]
  - DYSPEPSIA [None]
  - ECCHYMOSIS [None]
  - ENTEROCOCCAL INFECTION [None]
  - FEELING ABNORMAL [None]
  - HAEMATOCHEZIA [None]
  - HAEMODIALYSIS [None]
  - HAEMORRHOIDS [None]
  - HYPERKALAEMIA [None]
  - HYPERPARATHYROIDISM [None]
  - LIMB INJURY [None]
  - MALAISE [None]
  - MENTAL STATUS CHANGES [None]
  - MULTI-ORGAN FAILURE [None]
  - NAIL DYSTROPHY [None]
  - NAUSEA [None]
  - OEDEMA PERIPHERAL [None]
  - OPEN WOUND [None]
  - PERICARDIAL EFFUSION [None]
  - PERIPHERAL VASCULAR DISORDER [None]
  - PNEUMONIA [None]
  - PROTEINURIA [None]
  - PSEUDOMONAS INFECTION [None]
  - PURPURA [None]
  - RECTAL HAEMORRHAGE [None]
  - RENAL FAILURE ACUTE [None]
  - RESPIRATORY FAILURE [None]
  - SEPTIC SHOCK [None]
  - SKIN EXFOLIATION [None]
  - SKIN FISSURES [None]
  - STAPHYLOCOCCAL INFECTION [None]
  - TRICUSPID VALVE INCOMPETENCE [None]
  - URINARY TRACT INFECTION [None]
  - UROSEPSIS [None]
  - VISION BLURRED [None]
  - VOMITING [None]
  - WOUND SECRETION [None]
